FAERS Safety Report 5102669-5 (Version None)
Quarter: 2006Q3

REPORT INFORMATION
  Report Type: 
  Country: None (occurrence: None)
  Receive Date: 20060912
  Receipt Date: 20060901
  Transmission Date: 20061208
  Serious: Yes (Hospitalization)
  Sender: FDA-Public Use
  Company Number: PHBS2006US13370

PATIENT
  Sex: Female
  Weight: 62 kg

DRUGS (2)
  1. CLOZAPINE [Suspect]
     Indication: SCHIZOPHRENIA, CATATONIC TYPE
     Route: 065
     Dates: start: 19950101
  2. CLOZAPINE [Suspect]
     Route: 065
     Dates: start: 20040101

REACTIONS (23)
  - ANTINUCLEAR ANTIBODY POSITIVE [None]
  - ARTHRALGIA [None]
  - ASPARTATE AMINOTRANSFERASE INCREASED [None]
  - BLOOD LACTATE DEHYDROGENASE INCREASED [None]
  - BODY TEMPERATURE INCREASED [None]
  - BONE MARROW MYELOGRAM ABNORMAL [None]
  - CHEST PAIN [None]
  - COMPLEMENT FACTOR C4 DECREASED [None]
  - COOMBS DIRECT TEST NEGATIVE [None]
  - FATIGUE [None]
  - FREE HAEMOGLOBIN PRESENT [None]
  - HAEMOGLOBIN DECREASED [None]
  - HAPTOGLOBIN INCREASED [None]
  - HISTONE ANTIBODY POSITIVE [None]
  - JOINT SWELLING [None]
  - MYALGIA [None]
  - MYOPATHY [None]
  - RED BLOOD CELL SEDIMENTATION RATE INCREASED [None]
  - SERUM FERRITIN INCREASED [None]
  - SYSTEMIC LUPUS ERYTHEMATOSUS [None]
  - TENDERNESS [None]
  - URINE ANALYSIS ABNORMAL [None]
  - WEIGHT DECREASED [None]
